FAERS Safety Report 6542406-0 (Version None)
Quarter: 2010Q1

REPORT INFORMATION
  Report Type: 
  Country: None (occurrence: None)
  Receive Date: 20100114
  Receipt Date: 20100114
  Transmission Date: 20100710
  Serious: Yes (Death)
  Sender: FDA-Public Use
  Company Number: None

PATIENT
  Age: 45 Year
  Sex: Female
  Weight: 53 kg

DRUGS (7)
  1. CERTOLIZUMAB PEGOL (CERTOLIZUMAB PEGOL) [Suspect]
     Indication: CROHN'S DISEASE
     Dosage: INJECTION, INJECTION, - NR OF DOSES: 3, NI, NI SC
     Route: 058
     Dates: start: 20080718
  2. IKARAN (DIHYDROERGOTAMINE MESILATE) [Concomitant]
  3. SPASFON /00765801/ (TRAMADOL HYDROCHLORIDE) [Concomitant]
  4. TOPALGIC /00599202/) TRAMADOL HYDROCHLORIDE) [Concomitant]
  5. VENOFER [Concomitant]
  6. IDEOS /00944201/ [Concomitant]
  7. HYDROCORTISONE [Concomitant]

REACTIONS (8)
  - BLOOD CULTURE POSITIVE [None]
  - DEHYDRATION [None]
  - DEVICE RELATED INFECTION [None]
  - ENTEROCOCCAL INFECTION [None]
  - ESCHERICHIA INFECTION [None]
  - INTESTINAL OBSTRUCTION [None]
  - LOSS OF CONSCIOUSNESS [None]
  - SEPTIC SHOCK [None]
